FAERS Safety Report 17551311 (Version 1)
Quarter: 2020Q1

REPORT INFORMATION
  Report Type: Spontaneous
  Country: GB (occurrence: GB)
  Receive Date: 20200317
  Receipt Date: 20200317
  Transmission Date: 20200409
  Serious: Yes (Other)
  Sender: FDA-Public Use
  Company Number: GB-ACCORD-176095

PATIENT
  Age: 11 Year
  Sex: Male
  Weight: 40 kg

DRUGS (11)
  1. METOCLOPRAMIDE. [Concomitant]
     Active Substance: METOCLOPRAMIDE
  2. METHOTREXATE. [Suspect]
     Active Substance: METHOTREXATE
     Indication: CENTRAL NERVOUS SYSTEM LEUKAEMIA
     Dosage: IN COMBINATION WITH CYTARABINE AND HYDROCORTISONE
     Route: 037
     Dates: start: 20200121, end: 20200125
  3. HYDROCORTISONE. [Suspect]
     Active Substance: HYDROCORTISONE
     Indication: CENTRAL NERVOUS SYSTEM LEUKAEMIA
     Route: 037
     Dates: start: 20200121, end: 20200125
  4. PHENOXYMETHYLPENICILLIN [Concomitant]
     Active Substance: PENICILLIN V
  5. CEFTAZIDIME/CEFTAZIDIME PENTAHYDRATE [Concomitant]
     Active Substance: CEFTAZIDIME
  6. ONDANSETRON [Concomitant]
     Active Substance: ONDANSETRON
  7. LORAZEPAM. [Concomitant]
     Active Substance: LORAZEPAM
  8. GENTAMICIN. [Concomitant]
     Active Substance: GENTAMICIN
  9. VYXEOS [Suspect]
     Active Substance: CYTARABINE\DAUNORUBICIN
     Indication: CENTRAL NERVOUS SYSTEM LEUKAEMIA
     Dosage: 135UNITS/M2 X 3 DOSES OF VYXEOS.
     Route: 042
     Dates: start: 20200121, end: 20200125
  10. ALLOPURINOL. [Concomitant]
     Active Substance: ALLOPURINOL
  11. ACICLOVIR [Concomitant]
     Active Substance: ACYCLOVIR

REACTIONS (2)
  - Toxic encephalopathy [Recovered/Resolved]
  - Seizure [Recovered/Resolved]

NARRATIVE: CASE EVENT DATE: 20200214
